FAERS Safety Report 5049235-8 (Version None)
Quarter: 2006Q2

REPORT INFORMATION
  Report Type: 
  Country: None (occurrence: None)
  Receive Date: 20060613
  Receipt Date: 20060404
  Transmission Date: 20061013
  Serious: Yes (Other)
  Sender: FDA-Public Use
  Company Number: 2006-00764

PATIENT
  Age: 55 Year
  Sex: Male
  Weight: 87.1 kg

DRUGS (3)
  1. VELCADE [Suspect]
     Indication: MULTIPLE MYELOMA
     Dosage: 1.30 MG/M2, IV BOLUS
     Route: 040
     Dates: start: 20051107, end: 20060223
  2. DEXAMETHASONE [Suspect]
     Indication: DRUG USE FOR UNKNOWN INDICATION
     Dosage: 20.00 MG
     Dates: start: 20051107
  3. AREDIA [Concomitant]

REACTIONS (1)
  - EJECTION FRACTION DECREASED [None]
